FAERS Safety Report 6412181-9 (Version None)
Quarter: 2009Q4

REPORT INFORMATION
  Report Type: 
  Country: None (occurrence: None)
  Receive Date: 20091023
  Receipt Date: 20091021
  Transmission Date: 20100525
  Serious: Yes (Disabling, Other)
  Sender: FDA-Public Use
  Company Number: A0812666A

PATIENT
  Age: 77 Year
  Sex: Female
  Weight: 80 kg

DRUGS (11)
  1. AVANDIA [Suspect]
     Indication: DRUG USE FOR UNKNOWN INDICATION
     Dosage: 4MG PER DAY
     Route: 065
  2. APO-PROPRANOLOL [Concomitant]
     Route: 048
  3. ASPIRIN [Concomitant]
     Route: 048
  4. ATIVAN [Concomitant]
     Route: 065
  5. CALCIUM [Concomitant]
     Route: 048
  6. CRESTOR [Concomitant]
     Route: 048
  7. DIABETA [Concomitant]
     Route: 048
  8. GLUMETZA [Concomitant]
     Route: 048
  9. LOZIDE [Concomitant]
     Route: 048
  10. ASCORBIC ACID [Concomitant]
     Route: 048
  11. VITAMIN D [Concomitant]
     Route: 048

REACTIONS (5)
  - ARTHRALGIA [None]
  - BONE PAIN [None]
  - DISABILITY [None]
  - WALKING DISABILITY [None]
  - WEIGHT INCREASED [None]
